FAERS Safety Report 17065130 (Version 1)
Quarter: 2019Q4

REPORT INFORMATION
  Report Type: Spontaneous
  Country: US (occurrence: US)
  Receive Date: 20191122
  Receipt Date: 20191122
  Transmission Date: 20200122
  Serious: Yes (Life-Threatening, Hospitalization)
  Sender: FDA-Public Use
  Company Number: None

PATIENT
  Age: 38 Year
  Sex: Female

DRUGS (3)
  1. TRANEXAMIC ACID. [Suspect]
     Active Substance: TRANEXAMIC ACID
     Indication: POSTPARTUM HAEMORRHAGE
     Route: 040
  2. CEFOXITIN [Concomitant]
     Active Substance: CEFOXITIN SODIUM
  3. MISOPROSTOL. [Concomitant]
     Active Substance: MISOPROSTOL

REACTIONS (6)
  - Tachycardia [None]
  - Infusion related reaction [None]
  - Feeling cold [None]
  - Hypertension [None]
  - Hypoxia [None]
  - Tremor [None]

NARRATIVE: CASE EVENT DATE: 20191015
